FAERS Safety Report 15660836 (Version 1)
Quarter: 2018Q4

REPORT INFORMATION
  Report Type: Spontaneous
  Country: US (occurrence: US)
  Receive Date: 20181127
  Receipt Date: 20181127
  Transmission Date: 20190205
  Serious: No
  Sender: FDA-Public Use
  Company Number: US-TEVA-2017-US-827202

PATIENT
  Sex: Female

DRUGS (1)
  1. AZITHROMYCIN ANHYDROUS. [Suspect]
     Active Substance: AZITHROMYCIN ANHYDROUS

REACTIONS (6)
  - Abdominal pain [Unknown]
  - Chest pain [Unknown]
  - Irritable bowel syndrome [Unknown]
  - Frequent bowel movements [Unknown]
  - Muscle spasms [Unknown]
  - Pain [Unknown]
